FAERS Safety Report 24364143 (Version 1)
Quarter: 2024Q3

REPORT INFORMATION
  Report Type: Report from Study
  Country: US (occurrence: US)
  Receive Date: 20240925
  Receipt Date: 20240925
  Transmission Date: 20241017
  Serious: Yes (Other)
  Sender: BAUSCH AND LOMB
  Company Number: US-BAUSCHBL-2024BNL033920

PATIENT
  Age: 61 Year
  Sex: Female

DRUGS (1)
  1. MIEBO [Suspect]
     Active Substance: PERFLUOROHEXYLOCTANE
     Indication: Product used for unknown indication
     Dosage: INSTILL ONE DROP INTO BOTH EYES TWO TIMES DAILY AS DIRECTED
     Route: 047

REACTIONS (2)
  - Uveitis [Unknown]
  - Inappropriate schedule of product administration [Unknown]
